FAERS Safety Report 5662373-1 (Version None)
Quarter: 2008Q1

REPORT INFORMATION
  Report Type: 
  Country: None (occurrence: None)
  Receive Date: 20080310
  Receipt Date: 20080229
  Transmission Date: 20080703
  Serious: Yes (Hospitalization)
  Sender: FDA-Public Use
  Company Number: 2008AL001257

PATIENT
  Age: 44 Year
  Sex: Female

DRUGS (10)
  1. CITALOPRAM HYDROBROMIDE [Suspect]
     Indication: DEPRESSION
     Dosage: 40 MG;QD;PO
     Route: 048
  2. PETHIDINE [Concomitant]
  3. FENTANYL TRANSDERMAL SYSTEM [Concomitant]
  4. HYDROMORPHONE HCL [Concomitant]
  5. ACETAMINOPHEN AND HYDROCODONE BITARTRATE [Concomitant]
  6. PROMETHAZINE [Concomitant]
  7. GATIFLOXACIN [Concomitant]
  8. ZOLPIDEM [Concomitant]
  9. LANSOPRAZOLE [Concomitant]
  10. ENOXAPARIN SODIUM [Concomitant]

REACTIONS (7)
  - ABNORMAL BEHAVIOUR [None]
  - BREAKTHROUGH PAIN [None]
  - DEBRIDEMENT [None]
  - DEPRESSION [None]
  - SEROTONIN SYNDROME [None]
  - SURGERY [None]
  - WOUND INFECTION [None]
